FAERS Safety Report 9257179 (Version 1)
Quarter: 2013Q2

REPORT INFORMATION
  Report Type: Spontaneous
  Country: FR (occurrence: FR)
  Receive Date: 20130426
  Receipt Date: 20130426
  Transmission Date: 20140414
  Serious: Yes (Hospitalization)
  Sender: FDA-Public Use
  Company Number: PHHY2013FR039276

PATIENT
  Age: 69 Year
  Sex: Male

DRUGS (11)
  1. TAREG [Suspect]
     Route: 048
  2. BISOPROLOL [Suspect]
     Dosage: UNK UKN, UNK
     Route: 048
     Dates: start: 2010
  3. TAHOR [Suspect]
     Dosage: UNK UKN, UNK
     Route: 048
     Dates: start: 2008
  4. ASPEGIC [Concomitant]
     Dates: start: 2009
  5. MOLSIDOMINE [Concomitant]
  6. ISOPTINE [Concomitant]
  7. LANTUS [Concomitant]
  8. INEXIUM [Concomitant]
  9. IMODIUM [Concomitant]
  10. CREON [Concomitant]
  11. DOLIPRANE [Concomitant]

REACTIONS (4)
  - Interstitial lung disease [Not Recovered/Not Resolved]
  - Dyspnoea [Unknown]
  - Cough [Unknown]
  - Haemoptysis [Unknown]
